FAERS Safety Report 4718685-9 (Version None)
Quarter: 2005Q3

REPORT INFORMATION
  Report Type: 
  Country: None (occurrence: None)
  Receive Date: 20050719
  Receipt Date: 20050708
  Transmission Date: 20060218
  Serious: Yes (Hospitalization)
  Sender: FDA-Public Use
  Company Number: Q05-031

PATIENT
  Age: 70 Year
  Sex: Male
  Weight: 99 kg

DRUGS (14)
  1. SAMARIUM 153 LEXIDRONAM [Suspect]
     Indication: PROSTATE CANCER
     Dosage: 1 MCI/KG
     Dates: start: 20050511
  2. TAXOTERE [Suspect]
     Indication: PROSTATE CANCER
     Dosage: 25 MG/M2 X3
     Dates: start: 20050512
  3. TAXOTERE [Suspect]
     Indication: PROSTATE CANCER
     Dosage: 25 MG/M2 X3
     Dates: start: 20050518
  4. TAXOTERE [Suspect]
     Indication: PROSTATE CANCER
     Dosage: 25 MG/M2 X3
     Dates: start: 20050525
  5. NEXIUM [Concomitant]
  6. COUMADIN [Suspect]
  7. HYDROCORTISONE [Concomitant]
  8. AMBIEN [Concomitant]
  9. SENOKOT [Concomitant]
  10. ZOFRAN [Concomitant]
  11. METOPROLOL [Concomitant]
  12. BENADRYL [Concomitant]
  13. CLARITIN [Concomitant]
  14. MALOX [Concomitant]

REACTIONS (4)
  - CHEST PAIN [None]
  - ELECTROCARDIOGRAM CHANGE [None]
  - MENINGEAL NEOPLASM [None]
  - TROPONIN INCREASED [None]
